FAERS Safety Report 17084886 (Version 1)
Quarter: 2019Q4

REPORT INFORMATION
  Report Type: Spontaneous
  Country: US (occurrence: US)
  Receive Date: 20191030
  Receipt Date: 20191030
  Transmission Date: 20200122
  Serious: No
  Sender: FDA-Public Use
  Company Number: None

PATIENT
  Sex: Male

DRUGS (1)
  1. COSENTYX [Suspect]
     Active Substance: SECUKINUMAB
     Indication: ANKYLOSING SPONDYLITIS
     Dosage: ON HOLD
     Route: 058
     Dates: start: 20190919

REACTIONS (6)
  - Dizziness [None]
  - Asthenia [None]
  - Pollakiuria [None]
  - Fatigue [None]
  - Headache [None]
  - Dry mouth [None]
